FAERS Safety Report 13192902 (Version 4)
Quarter: 2017Q2

REPORT INFORMATION
  Report Type: Spontaneous
  Country: JP (occurrence: JP)
  Receive Date: 20170207
  Receipt Date: 20170606
  Transmission Date: 20170830
  Serious: Yes (Other)
  Sender: FDA-Public Use
  Company Number: JP-PFIZER INC-2017049282

PATIENT
  Age: 16 Year
  Sex: Male
  Weight: 47 kg

DRUGS (6)
  1. GENOTROPIN [Suspect]
     Active Substance: SOMATROPIN
     Indication: DWARFISM
     Dosage: 0.75 MG/DAY, 6X/WEEK
     Route: 058
     Dates: start: 20120719, end: 20131120
  2. GENOTROPIN [Suspect]
     Active Substance: SOMATROPIN
     Dosage: 1.05 MG, 1X/DAY
     Route: 058
     Dates: start: 20150402, end: 20160217
  3. GENOTROPIN [Suspect]
     Active Substance: SOMATROPIN
     Dosage: 0.9 MG/DAY, 6X/WEEK
     Route: 058
     Dates: start: 20131121, end: 20140402
  4. GENOTROPIN [Suspect]
     Active Substance: SOMATROPIN
     Dosage: 1.05 MG/DAY, 3X/WEEK AND 1.2 MG/DAY, 4X/WEEK
     Route: 058
     Dates: start: 20160218, end: 20170111
  5. GENOTROPIN [Suspect]
     Active Substance: SOMATROPIN
     Indication: GROWTH HORMONE DEFICIENCY
     Dosage: 0.6 MG/DAY, 6X/WEEK
     Route: 058
     Dates: start: 20111027, end: 20120718
  6. GENOTROPIN [Suspect]
     Active Substance: SOMATROPIN
     Dosage: 0.9 MG, 1X/DAY
     Route: 058
     Dates: start: 20140403, end: 20150401

REACTIONS (2)
  - Loss of consciousness [Recovered/Resolved]
  - Cerebral infarction [Unknown]

NARRATIVE: CASE EVENT DATE: 201701
